FAERS Safety Report 6982819-6 (Version None)
Quarter: 2010Q3

REPORT INFORMATION
  Report Type: 
  Country: None (occurrence: None)
  Receive Date: 20100914
  Receipt Date: 20100327
  Transmission Date: 20110219
  Serious: No
  Sender: FDA-Public Use
  Company Number: US-PFIZER INC-2010040634

PATIENT
  Sex: Male
  Weight: 86.168 kg

DRUGS (13)
  1. LYRICA [Suspect]
     Indication: PARAESTHESIA
     Dosage: 50 MG, 2X/DAY
     Route: 048
     Dates: start: 20100101
  2. LYRICA [Suspect]
     Dosage: 75 MG, 2X/DAY
     Route: 048
  3. NORVASC [Concomitant]
     Dosage: 5 MG, 1X/DAY
  4. UROXATRAL [Concomitant]
     Dosage: 10 MG, 2X/DAY
  5. PAXIL [Concomitant]
     Dosage: 40 MG, 1X/DAY
  6. CHLORTHALIDONE [Concomitant]
     Dosage: 25 MG, 1X/DAY
  7. SYNTHROID [Concomitant]
     Dosage: 88 UG, 1X/DAY
  8. WELLBUTRIN [Concomitant]
     Dosage: 150 MG, 2X/DAY
  9. FOSAMAX [Concomitant]
     Dosage: 75 MG, WEEKLY
  10. VALTREX [Concomitant]
     Dosage: 1 G, 1X/DAY
  11. CARDURA [Concomitant]
     Dosage: 4 MG, AT NIGHT
  12. TRAZODONE [Concomitant]
     Dosage: 100 MG, AT NIGHT
  13. ACETYLSALICYLIC ACID [Concomitant]
     Dosage: 81 MG, UNK

REACTIONS (1)
  - NIGHT SWEATS [None]
